FAERS Safety Report 7683092-6 (Version None)
Quarter: 2011Q3

REPORT INFORMATION
  Report Type: 
  Country: None (occurrence: None)
  Receive Date: 20110815
  Receipt Date: 20110802
  Transmission Date: 20111222
  Serious: Yes (Other)
  Sender: FDA-Public Use
  Company Number: CA-ELI_LILLY_AND_COMPANY-CA201108000703

PATIENT
  Sex: Male

DRUGS (11)
  1. ZYPREXA [Suspect]
     Dosage: 25 MG, QD
  2. LOZAPINE [Concomitant]
  3. COGENTIN [Concomitant]
  4. ZYPREXA [Suspect]
     Indication: SCHIZOPHRENIA
     Dosage: 15 MG, QD
  5. FLUANXOL [Concomitant]
  6. RISPERDAL [Concomitant]
  7. MODECATE [Concomitant]
  8. SEROQUEL [Concomitant]
  9. ZYPREXA [Suspect]
     Dosage: 10 MG, QD
  10. LORAZEPAM [Concomitant]
  11. ZYPREXA [Suspect]
     Dosage: 20 MG, QD

REACTIONS (9)
  - HEPATIC STEATOSIS [None]
  - HEPATOSPLENOMEGALY [None]
  - ALANINE AMINOTRANSFERASE INCREASED [None]
  - DYSLIPIDAEMIA [None]
  - BLOOD GLUCOSE INCREASED [None]
  - OVERDOSE [None]
  - ASPARTATE AMINOTRANSFERASE INCREASED [None]
  - DIABETES MELLITUS [None]
  - ACUTE CORONARY SYNDROME [None]
